FAERS Safety Report 5632697-2 (Version None)
Quarter: 2008Q1

REPORT INFORMATION
  Report Type: 
  Country: None (occurrence: None)
  Receive Date: 20080220
  Receipt Date: 20080214
  Transmission Date: 20080703
  Serious: Yes (Hospitalization)
  Sender: FDA-Public Use
  Company Number: US-PFIZER INC-2008014441

PATIENT
  Sex: Male

DRUGS (2)
  1. QUINAPRIL HCL [Suspect]
  2. TOPROL-XL [Concomitant]

REACTIONS (2)
  - COGNITIVE DISORDER [None]
  - DIZZINESS [None]
